FAERS Safety Report 12509733 (Version 1)
Quarter: 2016Q2

REPORT INFORMATION
  Report Type: Spontaneous
  Country: US (occurrence: US)
  Receive Date: 20160629
  Receipt Date: 20160629
  Transmission Date: 20160815
  Serious: No
  Sender: FDA-Public Use
  Company Number: US-PERRIGO-15US008979

PATIENT
  Age: 45 Year
  Sex: Female
  Weight: 88.89 kg

DRUGS (1)
  1. RANITIDINE HYDROCHLORIDE. [Suspect]
     Active Substance: RANITIDINE HYDROCHLORIDE
     Indication: ACCIDENTAL OVERDOSE
     Dosage: 600 MG, SINGLE
     Route: 048
     Dates: start: 20150827, end: 20150827

REACTIONS (3)
  - Somnolence [Recovered/Resolved]
  - Wrong drug administered [Recovered/Resolved]
  - Accidental overdose [Recovered/Resolved]

NARRATIVE: CASE EVENT DATE: 20150827
